FAERS Safety Report 6438286-4 (Version None)
Quarter: 2009Q4

REPORT INFORMATION
  Report Type: 
  Country: None (occurrence: None)
  Receive Date: 20091112
  Receipt Date: 20091029
  Transmission Date: 20100525
  Serious: Yes (Other)
  Sender: FDA-Public Use
  Company Number: PHHY2009JP47400

PATIENT
  Sex: Female
  Weight: 72 kg

DRUGS (2)
  1. ZOMETA [Suspect]
     Indication: METASTASES TO BONE
     Dosage: 4MG (PER ADMINISTRATION)
     Route: 042
     Dates: start: 20060704, end: 20090421
  2. BISPHONAL [Concomitant]
     Dosage: UNK
     Route: 042
     Dates: start: 20040201

REACTIONS (7)
  - DENTAL DISCOMFORT [None]
  - DENTAL FISTULA [None]
  - GINGIVAL PAIN [None]
  - JAW DISORDER [None]
  - OSTEOMYELITIS [None]
  - TENDERNESS [None]
  - TOOTH EXTRACTION [None]
